FAERS Safety Report 8244943-X (Version None)
Quarter: 2012Q1

REPORT INFORMATION
  Report Type: 
  Country: None (occurrence: None)
  Receive Date: 20120329
  Receipt Date: 20110929
  Transmission Date: 20120608
  Serious: No
  Sender: FDA-Public Use
  Company Number: US-MYLANLABS-2011S1020491

PATIENT
  Age: 46 Year
  Sex: Male
  Weight: 72.58 kg

DRUGS (7)
  1. CARDURA [Concomitant]
     Indication: BLOOD PRESSURE INCREASED
  2. FENTANYL-100 [Suspect]
     Indication: BACK PAIN
     Dosage: CHANGES Q. 48 HOURS.
     Route: 062
     Dates: start: 20100101, end: 20110928
  3. SOMA [Concomitant]
     Indication: MUSCLE SPASMS
  4. THYROID TAB [Concomitant]
     Indication: HYPOTHYROIDISM
  5. MIDODRINE HYDROCHLORIDE [Concomitant]
     Indication: HEADACHE
  6. SONATA [Concomitant]
     Indication: INSOMNIA
  7. FENTANYL-100 [Suspect]
     Indication: RENAL PAIN
     Dosage: CHANGES Q. 48 HOURS.
     Route: 062
     Dates: start: 20100101, end: 20110928

REACTIONS (5)
  - DIZZINESS [None]
  - DRUG WITHDRAWAL SYNDROME [None]
  - BACK PAIN [None]
  - RENAL PAIN [None]
  - DRUG INEFFECTIVE [None]
